FAERS Safety Report 8951666 (Version 1)
Quarter: 2012Q4

REPORT INFORMATION
  Report Type: 
  Country: FR (occurrence: FR)
  Receive Date: 20121204
  Receipt Date: 20121204
  Transmission Date: 20130627
  Serious: Yes (Other)
  Sender: FDA-Public Use
  Company Number: CHPA2012FR022177

PATIENT
  Age: 63 Year
  Sex: Female
  Weight: 70 kg

DRUGS (3)
  1. SCOPODERM TTS [Suspect]
     Indication: PROPHYLAXIS AGAINST MOTION SICKNESS
     Dosage: 1 DF, 6 hours before departure of the airplane
     Route: 062
     Dates: start: 20121003, end: 20121003
  2. SECTRAL [Concomitant]
     Dosage: 200 mg, daily in evening
  3. ALDACTONE [Concomitant]
     Dosage: 1 DF, daily in the morning

REACTIONS (4)
  - Neoplasm malignant [Unknown]
  - Malaise [Recovered/Resolved]
  - Pain [Recovered/Resolved]
  - Somnolence [Recovered/Resolved]
